FAERS Safety Report 6255027-4 (Version None)
Quarter: 2009Q3

REPORT INFORMATION
  Report Type: 
  Country: None (occurrence: None)
  Receive Date: 20090702
  Receipt Date: 20090622
  Transmission Date: 20100115
  Serious: Yes (Other)
  Sender: FDA-Public Use
  Company Number: US-MERCK-0906USA04278

PATIENT
  Age: 72 Year
  Sex: Female

DRUGS (3)
  1. CORTONE [Suspect]
     Route: 065
  2. LANTUS [Suspect]
     Indication: DIABETES MELLITUS
     Route: 058
  3. HUMALOG [Suspect]
     Route: 065

REACTIONS (4)
  - BLOOD GLUCOSE INCREASED [None]
  - BLOOD PRESSURE INCREASED [None]
  - CATARACT [None]
  - MUSCULOSKELETAL STIFFNESS [None]
